FAERS Safety Report 5179110-X (Version None)
Quarter: 2006Q4

REPORT INFORMATION
  Report Type: 
  Country: None (occurrence: None)
  Receive Date: 20061214
  Receipt Date: 20061214
  Transmission Date: 20070319
  Serious: Yes (Other)
  Sender: FDA-Public Use
  Company Number: None

PATIENT
  Age: 43 Year
  Sex: Male
  Weight: 75.2971 kg

DRUGS (3)
  1. ARA-C [Suspect]
     Indication: NON-HODGKIN'S LYMPHOMA
     Dosage: INTRACARDIA
     Route: 016
     Dates: start: 20061205, end: 20061207
  2. METHOTREXATE-ARA-C [Concomitant]
  3. LEUCOVORIN CALCIUM [Concomitant]

REACTIONS (9)
  - ACTIVITIES OF DAILY LIVING IMPAIRED [None]
  - DIZZINESS [None]
  - DYSARTHRIA [None]
  - DYSGRAPHIA [None]
  - FALL [None]
  - GAIT DISTURBANCE [None]
  - INCOHERENT [None]
  - RESTLESSNESS [None]
  - VISUAL DISTURBANCE [None]
